FAERS Safety Report 5115188-7 (Version None)
Quarter: 2006Q3

REPORT INFORMATION
  Report Type: 
  Country: None (occurrence: None)
  Receive Date: 20060922
  Receipt Date: 20060908
  Transmission Date: 20061208
  Serious: Yes (Other)
  Sender: FDA-Public Use
  Company Number: 2006BI012971

PATIENT
  Sex: Female

DRUGS (2)
  1. NATALIZUMAB [Suspect]
     Indication: MULTIPLE SCLEROSIS
     Dosage: 300 MG; QM; IV
     Route: 042
     Dates: start: 20050101, end: 20050101
  2. AVONEX [Concomitant]

REACTIONS (6)
  - ADJUSTMENT DISORDER [None]
  - ATTENTION DEFICIT/HYPERACTIVITY DISORDER [None]
  - CLUSTER HEADACHE [None]
  - CONTUSION [None]
  - DEPRESSION [None]
  - MEMORY IMPAIRMENT [None]
